FAERS Safety Report 7760854-8 (Version None)
Quarter: 2011Q3

REPORT INFORMATION
  Report Type: 
  Country: None (occurrence: None)
  Receive Date: 20110919
  Receipt Date: 20110914
  Transmission Date: 20111222
  Serious: Yes (Other)
  Sender: FDA-Public Use
  Company Number: DE-PFIZER INC-2011112458

PATIENT
  Age: 46 Year
  Sex: Female

DRUGS (3)
  1. LYRICA [Suspect]
     Dosage: 150 MG, 2X/DAY
     Dates: start: 20110301, end: 20110401
  2. LYRICA [Suspect]
     Dosage: 150 MG PER DAY
     Dates: start: 20110401, end: 20110501
  3. LYRICA [Suspect]
     Dosage: 150 MG, 2X/DAY
     Dates: start: 20110501, end: 20110701

REACTIONS (2)
  - DEAFNESS UNILATERAL [None]
  - OTITIS MEDIA [None]
